FAERS Safety Report 12596794 (Version 3)
Quarter: 2025Q4

REPORT INFORMATION
  Report Type: Spontaneous
  Country: BR (occurrence: BR)
  Receive Date: 20160727
  Receipt Date: 20251008
  Transmission Date: 20260117
  Serious: Yes (Death, Life-Threatening, Other)
  Sender: RANBAXY
  Company Number: BR-MLMSERVICE-20160720-0354486-2

PATIENT
  Age: 15 Year
  Sex: Female

DRUGS (3)
  1. PREDNISONE [Suspect]
     Active Substance: PREDNISONE
     Indication: Systemic lupus erythematosus
     Dosage: 15 MG, DAILY
     Route: 065
  2. AZATHIOPRINE [Suspect]
     Active Substance: AZATHIOPRINE
     Indication: Systemic lupus erythematosus
     Dosage: 100 MG, DAILY
     Route: 065
  3. CHLOROQUINE [Suspect]
     Active Substance: CHLOROQUINE
     Indication: Product used for unknown indication
     Dosage: 250 MG, DAILY
     Route: 065

REACTIONS (1)
  - Disseminated tuberculosis [Fatal]
